FAERS Safety Report 4750882-9 (Version None)
Quarter: 2005Q3

REPORT INFORMATION
  Report Type: 
  Country: None (occurrence: None)
  Receive Date: 20050822
  Receipt Date: 20050815
  Transmission Date: 20060218
  Serious: Yes (Death, Hospitalization)
  Sender: FDA-Public Use
  Company Number: US-2005-007777

PATIENT
  Age: 63 Year
  Sex: Female

DRUGS (9)
  1. BETASERON [Suspect]
     Indication: MULTIPLE SCLEROSIS
     Dosage: 8 MIU, EVERY 2D, SUBCUTANEOUS
     Route: 058
     Dates: start: 19931217, end: 20050507
  2. DILANTIN [Concomitant]
  3. NORVASC [Concomitant]
  4. LISINOPRIL [Concomitant]
  5. PLAQUINOL (HYDROXYCHLOROQUINE SULFATE) [Concomitant]
  6. HYDROCHLOROTHIAZIDE [Concomitant]
  7. ACTONEL [Concomitant]
  8. PAXIL [Concomitant]
  9. LOTREL (BENAZEPRIL HYDROCHLORIDE, AMLODIPINE) [Concomitant]

REACTIONS (3)
  - CARDIAC ARREST [None]
  - TORSADE DE POINTES [None]
  - VENTRICULAR ARRHYTHMIA [None]
